FAERS Safety Report 6766832-X (Version None)
Quarter: 2010Q2

REPORT INFORMATION
  Report Type: 
  Country: None (occurrence: None)
  Receive Date: 20100609
  Receipt Date: 20100531
  Transmission Date: 20101027
  Serious: Yes (Hospitalization)
  Sender: FDA-Public Use
  Company Number: 604138

PATIENT
  Age: 59 Year
  Sex: Female
  Weight: 69.6 kg

DRUGS (5)
  1. MORPHINE SULFATE [Suspect]
     Indication: DRUG USE FOR UNKNOWN INDICATION
     Dosage: 30 MG MILLIGRAM(S), INTRAVENOUS
     Route: 042
     Dates: start: 20080317
  2. GRANISETRON [Suspect]
     Indication: DRUG USE FOR UNKNOWN INDICATION
     Dosage: 1 MG MILLIGRAM(S), INTRAVENOUS
     Route: 042
     Dates: start: 20080317
  3. METOCLOPRAMIDE [Suspect]
     Indication: DRUG USE FOR UNKNOWN INDICATION
     Dosage: 80 MG MILLIGRAM(S), INTRAVENOUS
     Route: 042
     Dates: start: 20080317, end: 20080318
  4. DALTEPARIN SODIUM [Concomitant]
  5. OXYCODONE HCL [Concomitant]

REACTIONS (4)
  - DIZZINESS [None]
  - HYPERHIDROSIS [None]
  - NAUSEA [None]
  - VOMITING [None]
